FAERS Safety Report 17655483 (Version 1)
Quarter: 2020Q2

REPORT INFORMATION
  Report Type: Spontaneous
  Country: US (occurrence: US)
  Receive Date: 20200410
  Receipt Date: 20200410
  Transmission Date: 20200713
  Serious: Yes (Other)
  Sender: FDA-Public Use
  Company Number: None

PATIENT
  Age: 40 Year
  Sex: Female
  Weight: 47.25 kg

DRUGS (7)
  1. XYZAL ALLERGY 24HR [Suspect]
     Active Substance: LEVOCETIRIZINE DIHYDROCHLORIDE
     Indication: SEASONAL ALLERGY
     Dosage: ?          QUANTITY:10 TABLET(S);?
     Route: 048
     Dates: start: 20200331, end: 20200403
  2. CALTRATE GUMMY BITES [Concomitant]
     Active Substance: CALCIUM\CHOLECALCIFEROL
  3. CRANBERRY GUMMIES [Concomitant]
  4. ZYRTEC [Concomitant]
     Active Substance: CETIRIZINE HYDROCHLORIDE
  5. WHEY PROTEIN SHAKES [Concomitant]
  6. TRIPLE OMEGA SOFTGELS [Concomitant]
  7. RHINOCORT [Concomitant]
     Active Substance: BUDESONIDE

REACTIONS (3)
  - Nightmare [None]
  - Hallucination [None]
  - Abnormal dreams [None]

NARRATIVE: CASE EVENT DATE: 20200331
